FAERS Safety Report 18441168 (Version 1)
Quarter: 2020Q4

REPORT INFORMATION
  Report Type: Spontaneous
  Country: US (occurrence: US)
  Receive Date: 20201029
  Receipt Date: 20201029
  Transmission Date: 20210114
  Serious: No
  Sender: FDA-Public Use
  Company Number: None

PATIENT
  Age: 63 Year
  Sex: Male
  Weight: 128.9 kg

DRUGS (7)
  1. HEPAIRN 5000 UNIT [Concomitant]
     Dates: start: 20201026, end: 20201027
  2. DEXAMETHASONE 6MG [Concomitant]
     Dates: start: 20201026, end: 20201027
  3. REMDESIVIR. [Suspect]
     Active Substance: REMDESIVIR
     Indication: COVID-19
     Route: 041
     Dates: start: 20201026, end: 20201027
  4. AZITHROMYCIN 500MG [Concomitant]
     Active Substance: AZITHROMYCIN
     Dates: start: 20201026, end: 20201026
  5. CEFTRIAXONE 1000MG [Concomitant]
     Active Substance: CEFTRIAXONE
     Dates: start: 20201026, end: 20201026
  6. AUGMENTIN [Concomitant]
     Active Substance: AMOXICILLIN\CLAVULANATE POTASSIUM
     Dates: start: 20201026, end: 20201027
  7. ALBUTEROL. [Concomitant]
     Active Substance: ALBUTEROL
     Dates: start: 20201026, end: 20201027

REACTIONS (2)
  - Therapy cessation [None]
  - Bradycardia [None]

NARRATIVE: CASE EVENT DATE: 20201026
